FAERS Safety Report 25287238 (Version 2)
Quarter: 2025Q2

REPORT INFORMATION
  Report Type: Spontaneous
  Country: IN (occurrence: IN)
  Receive Date: 20250509
  Receipt Date: 20250516
  Transmission Date: 20250717
  Serious: Yes (Life-Threatening, Hospitalization, Disabling, Other)
  Sender: MSN LABORATORIES PRIVATE LIMITED
  Company Number: IN-MLMSERVICE-20250417-PI484316-00291-1

PATIENT

DRUGS (1)
  1. ROSUVASTATIN [Suspect]
     Active Substance: ROSUVASTATIN
     Indication: Arteriosclerosis
     Dosage: HIGH-DOSE, 40 MG DAILY
     Route: 048

REACTIONS (2)
  - Muscle necrosis [Recovering/Resolving]
  - Myositis [Recovering/Resolving]
